FAERS Safety Report 20214280 (Version 4)
Quarter: 2023Q2

REPORT INFORMATION
  Report Type: Spontaneous
  Country: US (occurrence: US)
  Receive Date: 20211221
  Receipt Date: 20230509
  Transmission Date: 20230721
  Serious: Yes (Other)
  Sender: FDA-Public Use
  Company Number: US-PFIZER INC-202101641258

PATIENT
  Age: 73 Year
  Sex: Female

DRUGS (1)
  1. XELJANZ XR [Suspect]
     Active Substance: TOFACITINIB CITRATE
     Dosage: 11 MG, DAILY

REACTIONS (6)
  - Hip arthroplasty [Unknown]
  - COVID-19 [Unknown]
  - Illness [Unknown]
  - Fatigue [Unknown]
  - Dysphonia [Unknown]
  - Ulcer [Unknown]

NARRATIVE: CASE EVENT DATE: 20221205
